FAERS Safety Report 5954851-2 (Version None)
Quarter: 2008Q4

REPORT INFORMATION
  Report Type: 
  Country: None (occurrence: None)
  Receive Date: 20081113
  Receipt Date: 20081113
  Transmission Date: 20090506
  Serious: Yes (Other)
  Sender: FDA-Public Use
  Company Number: None

PATIENT
  Age: 21 Year
  Sex: Female
  Weight: 70.3075 kg

DRUGS (2)
  1. DEPO-MEDROL [Suspect]
     Indication: MIGRAINE
     Dosage: 40MG TOTAL 4 INJECTIONS IM, ONE SET OF INJECTIONS
     Route: 030
     Dates: start: 20080813, end: 20080813
  2. DEPO-MEDROL [Suspect]
     Indication: OCCIPITAL NEURALGIA
     Dosage: 40MG TOTAL 4 INJECTIONS IM, ONE SET OF INJECTIONS
     Route: 030
     Dates: start: 20080813, end: 20080813

REACTIONS (1)
  - MANIA [None]
